FAERS Safety Report 6663075-5 (Version None)
Quarter: 2010Q2

REPORT INFORMATION
  Report Type: 
  Country: None (occurrence: None)
  Receive Date: 20100401
  Receipt Date: 20100325
  Transmission Date: 20101027
  Serious: Yes (Life-Threatening)
  Sender: FDA-Public Use
  Company Number: GB-ELI_LILLY_AND_COMPANY-GB200911003806

PATIENT
  Sex: Male
  Weight: 81.5 kg

DRUGS (10)
  1. PEMETREXED [Suspect]
     Indication: NON-SMALL CELL LUNG CANCER
     Dosage: 750 MG, ONCE EVERY 21 DAYS
     Route: 042
     Dates: start: 20090828, end: 20091030
  2. CISPLATIN [Suspect]
     Indication: NON-SMALL CELL LUNG CANCER
     Dosage: 112 MG, EVERY 3 WEEKS
     Route: 042
     Dates: start: 20090828, end: 20091030
  3. ASPIRIN [Concomitant]
     Indication: CARDIAC DISORDER
     Dates: start: 20051128
  4. CARVEDILOL [Concomitant]
     Indication: CARDIAC DISORDER
     Dates: start: 20051128
  5. LEVOTHYROXINE SODIUM [Concomitant]
     Indication: HYPOTHYROIDISM
     Dates: start: 20070501
  6. RAMIPRIL [Concomitant]
     Indication: HYPERTENSION
     Dates: start: 20051128
  7. SIMVASTATIN [Concomitant]
     Indication: HYPERCHOLESTEROLAEMIA
     Dates: start: 20051128
  8. VITAMIN B-12 [Concomitant]
     Indication: PROPHYLAXIS
  9. FOLIC ACID [Concomitant]
     Indication: PROPHYLAXIS
  10. CORTICOSTEROID NOS [Concomitant]
     Indication: PROPHYLAXIS

REACTIONS (1)
  - PULMONARY EMBOLISM [None]
